FAERS Safety Report 5765890-9 (Version None)
Quarter: 2008Q2

REPORT INFORMATION
  Report Type: 
  Country: None (occurrence: None)
  Receive Date: 20080611
  Receipt Date: 20080530
  Transmission Date: 20081010
  Serious: Yes (Other)
  Sender: FDA-Public Use
  Company Number: JP-PFIZER INC-2008038282

PATIENT
  Sex: Female

DRUGS (6)
  1. ZITHROMAX [Suspect]
     Indication: BRONCHITIS
     Route: 048
     Dates: start: 20080425, end: 20080425
  2. ZITHROMAX [Suspect]
     Indication: PHARYNGOLARYNGEAL PAIN
  3. DASEN [Concomitant]
     Indication: BRONCHITIS
     Dosage: DAILY DOSE:30MG
     Route: 048
     Dates: start: 20080424, end: 20080425
  4. DASEN [Concomitant]
     Indication: PHARYNGOLARYNGEAL PAIN
  5. CODEINE SUL TAB [Concomitant]
     Route: 048
     Dates: start: 20080424, end: 20080425
  6. MAGNESIUM OXIDE [Concomitant]
     Dosage: DAILY DOSE:.2GRAM
     Route: 048
     Dates: start: 20080424, end: 20080425

REACTIONS (1)
  - DRUG HYPERSENSITIVITY [None]
